FAERS Safety Report 8225761-5 (Version None)
Quarter: 2012Q1

REPORT INFORMATION
  Report Type: 
  Country: None (occurrence: None)
  Receive Date: 20120321
  Receipt Date: 20111116
  Transmission Date: 20120608
  Serious: No
  Sender: FDA-Public Use
  Company Number: US-BAUSCH-2011BL008062

PATIENT
  Age: 47 Year
  Sex: Male

DRUGS (1)
  1. DESMOPRESSIN ACETATE [Suspect]
     Indication: DIABETES INSIPIDUS
     Route: 045
     Dates: start: 20111114

REACTIONS (4)
  - DRY MOUTH [None]
  - POLLAKIURIA [None]
  - DRUG INEFFECTIVE [None]
  - LIP DRY [None]
